FAERS Safety Report 10393679 (Version 1)
Quarter: 2014Q3

REPORT INFORMATION
  Report Type: Spontaneous
  Country: BR (occurrence: BR)
  Receive Date: 20140819
  Receipt Date: 20140819
  Transmission Date: 20150326
  Serious: Yes (Hospitalization, Other)
  Sender: FDA-Public Use
  Company Number: BR-009507513-1408BRA010076

PATIENT
  Sex: Male
  Weight: 40 kg

DRUGS (3)
  1. SINGULAIR [Suspect]
     Active Substance: MONTELUKAST SODIUM
     Dosage: HALF TABLET DAILY
     Route: 048
     Dates: start: 2007, end: 2007
  2. SINGULAIR [Suspect]
     Active Substance: MONTELUKAST SODIUM
     Indication: IMMUNE SYSTEM DISORDER
     Dosage: HALF TABLET DAILY
     Route: 048
     Dates: start: 2006, end: 2006
  3. SINGULAIR [Suspect]
     Active Substance: MONTELUKAST SODIUM
     Dosage: HALF TABLET DAILY
     Route: 048
     Dates: start: 2012

REACTIONS (14)
  - Hospitalisation [Recovered/Resolved]
  - Stereotypy [Not Recovered/Not Resolved]
  - Overdose [Unknown]
  - Wrong technique in drug usage process [Unknown]
  - House dust allergy [Not Recovered/Not Resolved]
  - Muscle twitching [Unknown]
  - Wrong technique in drug usage process [Unknown]
  - Wrong technique in drug usage process [Unknown]
  - Excessive eye blinking [Not Recovered/Not Resolved]
  - Surgery [Unknown]
  - Dry eye [Not Recovered/Not Resolved]
  - Overdose [Unknown]
  - Overdose [Unknown]
  - Off label use [Unknown]

NARRATIVE: CASE EVENT DATE: 2006
